FAERS Safety Report 21204182 (Version 1)
Quarter: 2022Q3

REPORT INFORMATION
  Report Type: Spontaneous
  Country: None (occurrence: FR)
  Receive Date: 20220812
  Receipt Date: 20220812
  Transmission Date: 20221027
  Serious: Yes (Death)
  Sender: FDA-Public Use
  Company Number: FR-AFSSAPS-AN20221706

PATIENT
  Age: 36 Year
  Sex: Male
  Weight: 69 kg

DRUGS (4)
  1. OXYGEN [Suspect]
     Active Substance: OXYGEN
     Indication: Superinfection bacterial
     Route: 045
     Dates: start: 20201220, end: 20201220
  2. AUGMENTIN [Suspect]
     Active Substance: AMOXICILLIN\CLAVULANATE POTASSIUM
     Route: 048
     Dates: start: 20201223
  3. MEDROL [Suspect]
     Active Substance: METHYLPREDNISOLONE
     Route: 048
     Dates: start: 20201223, end: 20201228
  4. DALTEPARIN SODIUM [Suspect]
     Active Substance: DALTEPARIN SODIUM
     Route: 058
     Dates: start: 20201223, end: 20201228

REACTIONS (1)
  - Hyperkalaemia [Fatal]

NARRATIVE: CASE EVENT DATE: 20201228
